FAERS Safety Report 9243087 (Version 1)
Quarter: 2013Q2

REPORT INFORMATION
  Report Type: Spontaneous
  Country: CA (occurrence: CA)
  Receive Date: 20130419
  Receipt Date: 20130419
  Transmission Date: 20140414
  Serious: Yes (Hospitalization)
  Sender: FDA-Public Use
  Company Number: CA-ELI_LILLY_AND_COMPANY-CA201304002962

PATIENT
  Age: 22 Year
  Sex: Male
  Weight: 18.14 kg

DRUGS (5)
  1. FORTEO [Suspect]
     Indication: OSTEOPOROSIS
     Dosage: 20 UG, QD
     Route: 058
     Dates: start: 20130322, end: 20130408
  2. DEFLAZACORT [Concomitant]
     Dosage: 24 MG, UNKNOWN
     Route: 048
  3. CONCERTA [Concomitant]
     Dosage: 36 MG, UNKNOWN
     Route: 048
  4. TUMS                               /06879101/ [Concomitant]
     Dosage: 500 MG, UNKNOWN
     Route: 048
  5. VITAMIN D [Concomitant]
     Dosage: 1000 IU, UNKNOWN
     Route: 048

REACTIONS (5)
  - Retching [Not Recovered/Not Resolved]
  - Headache [Not Recovered/Not Resolved]
  - Dizziness [Not Recovered/Not Resolved]
  - Back pain [Not Recovered/Not Resolved]
  - Nausea [Not Recovered/Not Resolved]
